FAERS Safety Report 4994124-8 (Version None)
Quarter: 2006Q2

REPORT INFORMATION
  Report Type: 
  Country: None (occurrence: None)
  Receive Date: 20060505
  Receipt Date: 20060426
  Transmission Date: 20061013
  Serious: Yes (Hospitalization)
  Sender: FDA-Public Use
  Company Number: FR-ROCHE-446056

PATIENT
  Age: 26 Year
  Sex: Female

DRUGS (3)
  1. RIVOTRIL [Suspect]
     Indication: DRUG USE FOR UNKNOWN INDICATION
     Route: 048
     Dates: start: 20060307
  2. LAMICTAL [Suspect]
     Route: 048
     Dates: start: 20060307, end: 20060314
  3. LAMICTAL [Suspect]
     Route: 048
     Dates: start: 20060315, end: 20060317

REACTIONS (6)
  - ANTINUCLEAR ANTIBODY POSITIVE [None]
  - ERYTHEMA [None]
  - HYPERTHERMIA [None]
  - PARVOVIRUS B19 SEROLOGY POSITIVE [None]
  - PRURITUS [None]
  - RASH GENERALISED [None]
